FAERS Safety Report 6151126-6 (Version None)
Quarter: 2009Q2

REPORT INFORMATION
  Report Type: 
  Country: None (occurrence: None)
  Receive Date: 20090410
  Receipt Date: 20090330
  Transmission Date: 20091009
  Serious: Yes (Other)
  Sender: FDA-Public Use
  Company Number: US-PFIZER INC-2009185839

PATIENT
  Sex: Male
  Weight: 69.841 kg

DRUGS (5)
  1. XANAX [Suspect]
     Indication: ANXIETY
     Dosage: 4 MG, 1X/DAY
  2. XANAX [Suspect]
     Indication: SLEEP DISORDER
  3. LIPITOR [Suspect]
     Indication: BLOOD CHOLESTEROL INCREASED
     Dosage: UNK
  4. LUNESTA [Suspect]
  5. ALL OTHER NON-THERAPEUTIC PRODUCTS [Suspect]

REACTIONS (7)
  - BLOOD CHOLESTEROL INCREASED [None]
  - BLOOD CREATININE INCREASED [None]
  - DRUG DEPENDENCE [None]
  - GLOMERULAR FILTRATION RATE DECREASED [None]
  - GLOMERULAR FILTRATION RATE INCREASED [None]
  - RENAL DISORDER [None]
  - RENAL FAILURE [None]
